FAERS Safety Report 20833434 (Version 1)
Quarter: 2022Q2

REPORT INFORMATION
  Report Type: Spontaneous
  Country: US (occurrence: None)
  Receive Date: 20220515
  Receipt Date: 20220515
  Transmission Date: 20220720
  Serious: Yes (Disabling)
  Sender: FDA-Public Use
  Company Number: None

PATIENT
  Age: 50 Year
  Sex: Male
  Weight: 149.4 kg

DRUGS (20)
  1. CLINDAMYCIN [Suspect]
     Active Substance: CLINDAMYCIN
     Indication: Staphylococcal infection
     Dosage: OTHER QUANTITY : 1 TABLET(S);?FREQUENCY : 3 TIMES A DAY;?
     Route: 048
  2. DEVICE [Concomitant]
     Active Substance: DEVICE
  3. GABAPENTIN [Concomitant]
     Active Substance: GABAPENTIN
  4. METFORMIN HYDROCHLORIDE [Concomitant]
     Active Substance: METFORMIN HYDROCHLORIDE
  5. METOPROLOL [Concomitant]
     Active Substance: METOPROLOL
  6. SUCCINATE ER [Concomitant]
  7. FENOFIBRATE [Concomitant]
     Active Substance: FENOFIBRATE
  8. LOSARTAN [Concomitant]
     Active Substance: LOSARTAN
  9. LIOTHYRONINE [Concomitant]
     Active Substance: LIOTHYRONINE
  10. FAMOTIDINE [Concomitant]
     Active Substance: FAMOTIDINE
  11. ASPIRIN [Concomitant]
     Active Substance: ASPIRIN
  12. FLUOXETINE HYDROCHLORIDE [Concomitant]
     Active Substance: FLUOXETINE HYDROCHLORIDE
  13. FEXOFENADINE HCL [Concomitant]
     Active Substance: FEXOFENADINE HYDROCHLORIDE
  14. PROTONIX [Concomitant]
     Active Substance: PANTOPRAZOLE SODIUM
  15. FUROSEMIDE [Concomitant]
     Active Substance: FUROSEMIDE
  16. LEVOTHYROXINE [Concomitant]
     Active Substance: LEVOTHYROXINE
  17. XYOSTED [Concomitant]
     Active Substance: TESTOSTERONE ENANTHATE
  18. MAGNESIUM [Concomitant]
     Active Substance: MAGNESIUM
  19. OROTATE [Concomitant]
  20. 3,3^-DIINDOLYLMETHANE [Concomitant]
     Active Substance: 3,3^-DIINDOLYLMETHANE

REACTIONS (2)
  - Tendon rupture [None]
  - Disability [None]

NARRATIVE: CASE EVENT DATE: 20220323
